FAERS Safety Report 6013648-8 (Version None)
Quarter: 2008Q4

REPORT INFORMATION
  Report Type: 
  Country: None (occurrence: None)
  Receive Date: 20081219
  Receipt Date: 20081208
  Transmission Date: 20090506
  Serious: Yes (Death)
  Sender: FDA-Public Use
  Company Number: TN-ROCHE-602417

PATIENT

DRUGS (4)
  1. TRETINOIN [Suspect]
     Indication: ACUTE PROMYELOCYTIC LEUKAEMIA
     Dosage: FRACTIONATED INTO TWO DOSES. UNTIL COMPLETE REMISSION (CR).
     Route: 048
  2. DAUNORUBICIN [Suspect]
     Dosage: DURING THREE DAYS
     Route: 040
  3. CYTARABINE [Suspect]
     Dosage: DURING SEVEN DAYS, FORM:INFUSION (CONTINUOUS).
     Route: 065
  4. IDARUBICIN HCL [Suspect]
     Dosage: ON DAYS 2, 4, 6 AND 8, FORM:INFUSION (20 MINUTES).
     Route: 042

REACTIONS (1)
  - HAEMORRHAGE [None]
